FAERS Safety Report 15569652 (Version 1)
Quarter: 2018Q4

REPORT INFORMATION
  Report Type: Spontaneous
  Country: US (occurrence: US)
  Receive Date: 20181025
  Receipt Date: 20181025
  Transmission Date: 20190205
  Serious: Yes (Hospitalization, Other)
  Sender: FDA-Public Use
  Company Number: None

PATIENT
  Age: 18 Year
  Sex: Female

DRUGS (13)
  1. DOXYCYCLINE. [Concomitant]
     Active Substance: DOXYCYCLINE
  2. VENTOLIN HFA [Concomitant]
     Active Substance: ALBUTEROL SULFATE
  3. PULMOZYME [Suspect]
     Active Substance: DORNASE ALFA
     Indication: CYSTIC FIBROSIS
     Dosage: 2.5 ML ONCE DAILY VIA NEBULIZER?
     Dates: start: 20171026
  4. NOVOLOG [Concomitant]
     Active Substance: INSULIN ASPART
  5. CREON [Concomitant]
     Active Substance: PANCRELIPASE AMYLASE\PANCRELIPASE LIPASE\PANCRELIPASE PROTEASE
  6. ALBUTEROL. [Concomitant]
     Active Substance: ALBUTEROL
  7. AZITHROMYCIN ANHYDROUS. [Concomitant]
     Active Substance: AZITHROMYCIN ANHYDROUS
  8. ACCU-CHECK TEST AVIVA [Concomitant]
  9. FREESTYLE KIT SENSOR [Concomitant]
  10. LANTUS SOLOSTAR [Concomitant]
     Active Substance: INSULIN GLARGINE
  11. TOBRAMYCIN 300 MG/5 ML NEB [Suspect]
     Active Substance: TOBRAMYCIN
     Indication: CYSTIC FIBROSIS
     Dosage: 300 MG TWICE DAILY VIA NEBULIZER?
     Dates: start: 20180809
  12. FASICLIX MIS LANCETS [Concomitant]
  13. FLUCONAZOLE. [Concomitant]
     Active Substance: FLUCONAZOLE

REACTIONS (1)
  - Ill-defined disorder [None]

NARRATIVE: CASE EVENT DATE: 20181009
